FAERS Safety Report 9001297 (Version 1)
Quarter: 2013Q1

REPORT INFORMATION
  Report Type: Spontaneous
  Country: US (occurrence: US)
  Receive Date: 20130107
  Receipt Date: 20130107
  Transmission Date: 20140127
  Serious: Yes (Death)
  Sender: FDA-Public Use
  Company Number: US-ASTRAZENECA-2013SE00766

PATIENT
  Age: 54 Year
  Sex: Female

DRUGS (16)
  1. LISINOPRIL [Suspect]
     Route: 048
  2. MONTELUKAST [Suspect]
     Route: 048
  3. AMITRIPTYLINE [Suspect]
     Route: 048
  4. TRAZODONE [Suspect]
  5. CAFFEIN/HERBS/GREEN TEA [Suspect]
     Route: 048
  6. GABAPENTIN [Suspect]
     Route: 048
  7. LIPOZENE [Suspect]
     Route: 048
  8. CETIRIZINE [Suspect]
     Route: 048
  9. DOCUSATE [Suspect]
     Route: 048
  10. ACETAMINOPHEN [Suspect]
     Route: 048
  11. DIPHENHYDRAMINE [Suspect]
     Route: 048
  12. PREDNISONE [Suspect]
     Route: 048
  13. LAXATIVE [Suspect]
     Route: 048
  14. HYDROXYZINE [Suspect]
     Route: 048
  15. MAGNESIUM SALICYLATE [Suspect]
     Route: 048
  16. PAMABROM [Suspect]
     Route: 048

REACTIONS (1)
  - Toxicity to various agents [Fatal]
